FAERS Safety Report 21915454 (Version 1)
Quarter: 2023Q1

REPORT INFORMATION
  Report Type: Spontaneous
  Country: US (occurrence: US)
  Receive Date: 20230126
  Receipt Date: 20230126
  Transmission Date: 20230418
  Serious: Yes (Hospitalization)
  Sender: FDA-Public Use
  Company Number: US-AMGEN-USASP2023009436

PATIENT
  Sex: Female

DRUGS (1)
  1. PROLIA [Suspect]
     Active Substance: DENOSUMAB
     Indication: Osteoporosis
     Dosage: 60 MILLIGRAM, Q6MO
     Route: 065
     Dates: start: 202106

REACTIONS (5)
  - Pain in extremity [Not Recovered/Not Resolved]
  - Gait inability [Recovered/Resolved]
  - Musculoskeletal stiffness [Unknown]
  - Neck pain [Not Recovered/Not Resolved]
  - Asthenia [Unknown]
